FAERS Safety Report 9470247 (Version 1)
Quarter: 2013Q3

REPORT INFORMATION
  Report Type: Spontaneous
  Country: US (occurrence: US)
  Receive Date: 20130822
  Receipt Date: 20130822
  Transmission Date: 20140515
  Serious: No
  Sender: FDA-Public Use
  Company Number: US-SANOFI-AVENTIS-2013SA041781

PATIENT
  Sex: Female

DRUGS (1)
  1. MULTAQ [Suspect]
     Dates: start: 20130409

REACTIONS (2)
  - Hypertension [Unknown]
  - Extra dose administered [Unknown]
